FAERS Safety Report 4299382-3 (Version None)
Quarter: 2004Q1

REPORT INFORMATION
  Report Type: 
  Country: None (occurrence: None)
  Receive Date: 20040219
  Receipt Date: 20040108
  Transmission Date: 20041129
  Serious: No
  Sender: FDA-Public Use
  Company Number: US-GLAXOSMITHKLINE-A0492020A

PATIENT
  Age: 58 Year
  Sex: Male

DRUGS (9)
  1. AVODART [Suspect]
     Indication: BENIGN PROSTATIC HYPERPLASIA
     Dosage: .5MG PER DAY
     Route: 048
     Dates: start: 20030101
  2. MONOPRIL [Concomitant]
  3. FELODIPINE [Concomitant]
  4. FLOMAX [Concomitant]
  5. GABAPENTIN [Concomitant]
  6. GUAIFENESIN [Concomitant]
  7. LORATADINE [Concomitant]
  8. ULTRAM [Concomitant]
  9. VIOXX [Concomitant]

REACTIONS (1)
  - ALOPECIA [None]
